FAERS Safety Report 9854760 (Version 1)
Quarter: 2014Q1

REPORT INFORMATION
  Report Type: Spontaneous
  Country: US (occurrence: US)
  Receive Date: 20140130
  Receipt Date: 20140130
  Transmission Date: 20141002
  Serious: No
  Sender: FDA-Public Use
  Company Number: US-PFIZER INC-2014027703

PATIENT
  Age: 54 Year
  Sex: Female
  Weight: 102.4 kg

DRUGS (8)
  1. NEURONTIN [Suspect]
     Dosage: UNK
     Route: 048
  2. NEURONTIN [Suspect]
     Dosage: 1200 MG (BY TAKING THREE ORAL CAPSULES OF 400MG), DAILY
     Route: 048
     Dates: end: 201401
  3. EFFEXOR [Suspect]
     Dosage: UNK
  4. METFORMIN [Concomitant]
     Dosage: UNK
  5. DIAZEPAM [Concomitant]
     Dosage: UNK
  6. BENICAR [Concomitant]
     Dosage: UNK
  7. DILANTIN [Concomitant]
     Dosage: UNK
  8. LEVOTHYROXINE [Concomitant]
     Indication: THYROID DISORDER
     Dosage: UNK

REACTIONS (4)
  - Nasopharyngitis [Unknown]
  - Influenza [Unknown]
  - Pain in extremity [Not Recovered/Not Resolved]
  - Burning sensation [Not Recovered/Not Resolved]
